FAERS Safety Report 25400050 (Version 2)
Quarter: 2025Q2

REPORT INFORMATION
  Report Type: Spontaneous
  Country: IN (occurrence: IN)
  Receive Date: 20250605
  Receipt Date: 20250619
  Transmission Date: 20250717
  Serious: Yes (Hospitalization, Other)
  Sender: ALKEM
  Company Number: None

PATIENT
  Age: 26 Year
  Sex: Male

DRUGS (2)
  1. TAMSULOSIN HYDROCHLORIDE [Suspect]
     Active Substance: TAMSULOSIN HYDROCHLORIDE
     Indication: Ureterolithiasis
     Dosage: 0.4 MILLIGRAM, QD (TABLET)
     Route: 048
  2. PHENYLEPHRINE HYDROCHLORIDE [Suspect]
     Active Substance: PHENYLEPHRINE HYDROCHLORIDE
     Indication: Priapism
     Route: 017

REACTIONS (3)
  - Hypoxia [Unknown]
  - Priapism [Recovering/Resolving]
  - Therapy non-responder [Unknown]
